FAERS Safety Report 15715104 (Version 1)
Quarter: 2018Q4

REPORT INFORMATION
  Report Type: Spontaneous
  Country: JP (occurrence: JP)
  Receive Date: 20181212
  Receipt Date: 20181212
  Transmission Date: 20190205
  Serious: Yes (Other)
  Sender: FDA-Public Use
  Company Number: PHJP2017JP021778

PATIENT

DRUGS (4)
  1. TEGRETOL [Suspect]
     Active Substance: CARBAMAZEPINE
     Indication: EPILEPSY
     Dosage: 300 MG, UNK
     Route: 048
  2. TEGRETOL [Suspect]
     Active Substance: CARBAMAZEPINE
     Dosage: 600 MG, UNK
     Route: 048
  3. TEGRETOL [Suspect]
     Active Substance: CARBAMAZEPINE
     Dosage: 2 DOSAGES ADMINISTERED AT ONCE
     Route: 048
     Dates: start: 20170703
  4. TEGRETOL [Suspect]
     Active Substance: CARBAMAZEPINE
     Dosage: 300 MG, TID
     Route: 048

REACTIONS (6)
  - Type IV hypersensitivity reaction [Unknown]
  - Generalised tonic-clonic seizure [Unknown]
  - Pruritus [Unknown]
  - Inappropriate schedule of product administration [Unknown]
  - Ileus paralytic [Unknown]
  - Insomnia [Unknown]

NARRATIVE: CASE EVENT DATE: 20170703
